FAERS Safety Report 17342953 (Version 1)
Quarter: 2020Q1

REPORT INFORMATION
  Report Type: Spontaneous
  Country: US (occurrence: US)
  Receive Date: 20200129
  Receipt Date: 20200129
  Transmission Date: 20200409
  Serious: No
  Sender: FDA-Public Use
  Company Number: US-ALLERGAN-1933744US

PATIENT
  Sex: Female

DRUGS (1)
  1. BOTOX COSMETIC [Suspect]
     Active Substance: ONABOTULINUMTOXINA
     Indication: SKIN WRINKLING
     Dosage: 10 UNITS, SINGLE

REACTIONS (5)
  - Nausea [Unknown]
  - Dizziness [Unknown]
  - Back pain [Unknown]
  - Tension headache [Unknown]
  - Neck pain [Unknown]

NARRATIVE: CASE EVENT DATE: 201908
